FAERS Safety Report 19007392 (Version 2)
Quarter: 2022Q1

REPORT INFORMATION
  Report Type: Spontaneous
  Country: CA (occurrence: CA)
  Receive Date: 20210315
  Receipt Date: 20220323
  Transmission Date: 20220423
  Serious: Yes (Death, Other)
  Sender: FDA-Public Use
  Company Number: CA-AMGEN-CANSP2021037257

PATIENT

DRUGS (1)
  1. CARFILZOMIB [Suspect]
     Active Substance: CARFILZOMIB
     Indication: Plasma cell myeloma
     Dosage: UNK
     Route: 065

REACTIONS (4)
  - Death [Fatal]
  - Plasma cell myeloma [Unknown]
  - Therapy partial responder [Unknown]
  - Off label use [Unknown]
